FAERS Safety Report 9341803 (Version 1)
Quarter: 2013Q2

REPORT INFORMATION
  Report Type: Spontaneous
  Country: CN (occurrence: CN)
  Receive Date: 20130611
  Receipt Date: 20130611
  Transmission Date: 20140414
  Serious: Yes (Other)
  Sender: FDA-Public Use
  Company Number: CN-EISAI INC-E3810-06483-SPO-CN

PATIENT
  Age: 81 Year
  Sex: Female
  Weight: 45 kg

DRUGS (3)
  1. ACIPHEX (RABEPRAZOLE) [Suspect]
     Indication: GASTRIC ULCER
     Dosage: UNKNOWN
     Route: 048
     Dates: start: 20120912, end: 20120914
  2. ALLANTOIN [Concomitant]
     Indication: GASTRIC ULCER
     Route: 048
     Dates: start: 20120912
  3. GASMOTIN [Concomitant]
     Indication: GASTRIC ULCER
     Route: 048
     Dates: start: 20120912

REACTIONS (2)
  - Anuria [Unknown]
  - Generalised oedema [Recovering/Resolving]
